FAERS Safety Report 23858689 (Version 1)
Quarter: 2024Q2

REPORT INFORMATION
  Report Type: Spontaneous
  Country: US (occurrence: None)
  Receive Date: 20240514
  Receipt Date: 20240514
  Transmission Date: 20240716
  Serious: Yes (Life-Threatening, Hospitalization)
  Sender: FDA-Public Use
  Company Number: None

PATIENT
  Age: 71 Year
  Sex: Female
  Weight: 104.78 kg

DRUGS (2)
  1. LECANEMAB [Suspect]
     Active Substance: LECANEMAB
     Indication: Dementia Alzheimer^s type
     Dates: start: 20240503
  2. LEQEMBI [Concomitant]
     Active Substance: LECANEMAB-IRMB

REACTIONS (3)
  - Thrombocytopenia [None]
  - Haemorrhage [None]
  - Petechiae [None]

NARRATIVE: CASE EVENT DATE: 20240512
